FAERS Safety Report 4428036-5 (Version None)
Quarter: 2004Q3

REPORT INFORMATION
  Report Type: 
  Country: None (occurrence: None)
  Receive Date: 20040813
  Receipt Date: 20040805
  Transmission Date: 20050211
  Serious: Yes (Death)
  Sender: FDA-Public Use
  Company Number: HQWYE109309AUG04

PATIENT
  Age: 29 Year
  Sex: Female

DRUGS (1)
  1. PRIMATENE MIST [Suspect]
     Indication: ASTHMA

REACTIONS (1)
  - MYOCARDIAL INFARCTION [None]
